FAERS Safety Report 4942290-2 (Version None)
Quarter: 2006Q1

REPORT INFORMATION
  Report Type: 
  Country: None (occurrence: None)
  Receive Date: 20060313
  Receipt Date: 20051110
  Transmission Date: 20060701
  Serious: No
  Sender: FDA-Public Use
  Company Number: US-GLAXOSMITHKLINE-A0581759A

PATIENT
  Age: 36 Year
  Sex: Female

DRUGS (2)
  1. NICORETTE (ORANGE) [Suspect]
     Dates: start: 20051107
  2. NICORETTE [Suspect]
     Dates: start: 20051030

REACTIONS (3)
  - HICCUPS [None]
  - NAUSEA [None]
  - VOMITING [None]
